FAERS Safety Report 9353632 (Version 5)
Quarter: 2013Q4

REPORT INFORMATION
  Report Type: Report from Study
  Country: FR (occurrence: FR)
  Receive Date: 20130618
  Receipt Date: 20131230
  Transmission Date: 20140711
  Serious: Yes (Hospitalization, Other)
  Sender: FDA-Public Use
  Company Number: FR-009507513-1303FRA010277

PATIENT
  Age: 67 Year
  Sex: Female
  Weight: 55 kg

DRUGS (5)
  1. BOCEPREVIR [Suspect]
     Indication: CHRONIC HEPATITIS C
     Dosage: 800 MG, TID
     Route: 048
     Dates: start: 20130225, end: 20130507
  2. REBETOL [Suspect]
     Indication: CHRONIC HEPATITIS C
     Dosage: 800 MG, QD
     Route: 048
     Dates: start: 20130128, end: 20130507
  3. REBETOL [Suspect]
     Dosage: 600 MG, UNK
     Route: 048
     Dates: start: 20130304, end: 20130507
  4. VIRAFERONPEG [Concomitant]
     Indication: CHRONIC HEPATITIS C
     Dosage: 1.5 MICROGRAM PER KILOGRAM, QW
     Route: 058
     Dates: start: 20130128, end: 20130507
  5. LEVOTHYROX [Concomitant]
     Indication: HYPOTHYROIDISM

REACTIONS (3)
  - Anaemia [Recovered/Resolved]
  - Anaemia [Recovered/Resolved]
  - Rash [Recovered/Resolved]
